FAERS Safety Report 17985014 (Version 1)
Quarter: 2020Q2

REPORT INFORMATION
  Report Type: Report from Study
  Country: BR (occurrence: BR)
  Receive Date: 20200630
  Receipt Date: 20200630
  Transmission Date: 20200714
  Serious: Yes (Other)
  Sender: FDA-Public Use
  Company Number: NVSC2020BR174375

PATIENT
  Age: 34 Year
  Sex: Male

DRUGS (3)
  1. COSENTYX [Suspect]
     Active Substance: SECUKINUMAB
     Dosage: 150 MG/ML, QMO
     Route: 065
  2. TORSILAX [Concomitant]
     Active Substance: ACETAMINOPHEN\CAFFEINE\CARISOPRODOL\DICLOFENAC
     Indication: PAIN
     Dosage: UNK, Q8H
     Route: 065
  3. COSENTYX [Suspect]
     Active Substance: SECUKINUMAB
     Indication: ANKYLOSING SPONDYLITIS
     Dosage: 150 MG/ML, QW
     Route: 065
     Dates: start: 20190614

REACTIONS (41)
  - Pyrexia [Recovering/Resolving]
  - Malaise [Not Recovered/Not Resolved]
  - Chills [Unknown]
  - Device leakage [Unknown]
  - Product prescribing error [Unknown]
  - Spinal deformity [Not Recovered/Not Resolved]
  - Musculoskeletal discomfort [Recovering/Resolving]
  - Anxiety [Not Recovered/Not Resolved]
  - Loss of personal independence in daily activities [Recovering/Resolving]
  - Sluggishness [Recovering/Resolving]
  - Diarrhoea [Recovering/Resolving]
  - Gait disturbance [Recovering/Resolving]
  - Nervousness [Not Recovered/Not Resolved]
  - Headache [Recovering/Resolving]
  - Vision blurred [Not Recovered/Not Resolved]
  - Nasal congestion [Recovering/Resolving]
  - Eye colour change [Not Recovered/Not Resolved]
  - Neuritis [Not Recovered/Not Resolved]
  - Hypertension [Unknown]
  - Joint swelling [Not Recovered/Not Resolved]
  - Ankylosing spondylitis [Not Recovered/Not Resolved]
  - Catarrh [Recovering/Resolving]
  - Device issue [Unknown]
  - Peripheral swelling [Recovering/Resolving]
  - Deafness [Recovering/Resolving]
  - Pain [Not Recovered/Not Resolved]
  - Insomnia [Not Recovered/Not Resolved]
  - Tremor [Unknown]
  - Pelvic pain [Not Recovered/Not Resolved]
  - Head discomfort [Recovering/Resolving]
  - Accidental exposure to product [Unknown]
  - Myocardial infarction [Not Recovered/Not Resolved]
  - Myopia [Not Recovered/Not Resolved]
  - Astigmatism [Not Recovered/Not Resolved]
  - Nasopharyngitis [Recovering/Resolving]
  - Asthenia [Unknown]
  - Fatigue [Not Recovered/Not Resolved]
  - Dark circles under eyes [Recovered/Resolved]
  - Injury [Unknown]
  - Feeling abnormal [Recovering/Resolving]
  - Pelvic deformity [Unknown]

NARRATIVE: CASE EVENT DATE: 2019
